FAERS Safety Report 8397671-4 (Version None)
Quarter: 2012Q2

REPORT INFORMATION
  Report Type: 
  Country: None (occurrence: None)
  Receive Date: 20120531
  Receipt Date: 20120523
  Transmission Date: 20120825
  Serious: No
  Sender: FDA-Public Use
  Company Number: US-PFIZER INC-2012087555

PATIENT
  Age: 40 Year
  Sex: Female
  Weight: 43.084 kg

DRUGS (5)
  1. ADVIL [Suspect]
     Indication: NECK PAIN
  2. GUAIFENESIN [Suspect]
     Indication: COUGH
     Dosage: UNK
     Dates: start: 20120101, end: 20120101
  3. ADVIL [Suspect]
     Indication: HEADACHE
  4. CHERATUSSIN AC [Suspect]
     Indication: COUGH
     Dosage: UNK
     Dates: start: 20120101
  5. ADVIL [Suspect]
     Indication: ARTHRALGIA
     Dosage: UNK, AS NEEDED
     Route: 048
     Dates: end: 20120404

REACTIONS (6)
  - DRUG INEFFECTIVE [None]
  - PNEUMONITIS [None]
  - MALAISE [None]
  - POOR QUALITY DRUG ADMINISTERED [None]
  - ABDOMINAL PAIN UPPER [None]
  - COUGH [None]
